FAERS Safety Report 24171672 (Version 2)
Quarter: 2024Q4

REPORT INFORMATION
  Report Type: Spontaneous
  Country: US (occurrence: US)
  Receive Date: 20240805
  Receipt Date: 20241001
  Transmission Date: 20250115
  Serious: No
  Sender: BAUSCH AND LOMB
  Company Number: US-BAUSCHBL-2024BNL030631

PATIENT
  Sex: Female

DRUGS (1)
  1. MIEBO [Suspect]
     Active Substance: PERFLUOROHEXYLOCTANE
     Indication: Product used for unknown indication
     Route: 065

REACTIONS (10)
  - Blepharitis [Unknown]
  - Eye disorder [Unknown]
  - Product container issue [Unknown]
  - Product delivery mechanism issue [Unknown]
  - Product packaging quantity issue [Unknown]
  - Product distribution issue [Unknown]
  - Therapy interrupted [Unknown]
  - Product use complaint [Unknown]
  - Product prescribing issue [Unknown]
  - Extra dose administered [Unknown]
